FAERS Safety Report 24414468 (Version 3)
Quarter: 2024Q4

REPORT INFORMATION
  Report Type: Spontaneous
  Country: US (occurrence: US)
  Receive Date: 20241009
  Receipt Date: 20241019
  Transmission Date: 20250115
  Serious: No
  Sender: SANOFI AVENTIS
  Company Number: US-SA-2024SA290136

PATIENT
  Age: 67 Year
  Sex: Female

DRUGS (1)
  1. APIDRA SOLOSTAR [Suspect]
     Active Substance: INSULIN GLULISINE
     Indication: Type 2 diabetes mellitus
     Dosage: UNK
     Dates: start: 2023

REACTIONS (1)
  - Intentional product misuse [Unknown]
